FAERS Safety Report 10589112 (Version 3)
Quarter: 2015Q1

REPORT INFORMATION
  Report Type: Spontaneous
  Country: US (occurrence: US)
  Receive Date: 20141118
  Receipt Date: 20150211
  Transmission Date: 20150720
  Serious: No
  Sender: FDA-Public Use
  Company Number: US-GILEAD-2014-0122669

PATIENT
  Age: 57 Year
  Sex: Female

DRUGS (2)
  1. ADEMPAS [Concomitant]
     Active Substance: RIOCIGUAT
  2. LETAIRIS [Suspect]
     Active Substance: AMBRISENTAN
     Indication: SYSTEMIC LUPUS ERYTHEMATOSUS
     Dosage: 5 MG, QD
     Route: 065
     Dates: start: 20110720

REACTIONS (6)
  - Nausea [Unknown]
  - Bronchitis [Unknown]
  - Diarrhoea [Unknown]
  - Sinusitis [Unknown]
  - Dizziness [Unknown]
  - Hypotension [Unknown]
